FAERS Safety Report 4987917-4 (Version None)
Quarter: 2006Q2

REPORT INFORMATION
  Report Type: 
  Country: None (occurrence: None)
  Receive Date: 20060424
  Receipt Date: 20060406
  Transmission Date: 20061013
  Serious: No
  Sender: FDA-Public Use
  Company Number: ACO_0218_2006

PATIENT

DRUGS (4)
  1. TERNELIN [Suspect]
     Indication: BACK PAIN
     Dosage: 3 MG QDAY PO
     Route: 048
     Dates: end: 20060224
  2. MINALFENE [Concomitant]
  3. CYANOCOBALAMIN [Concomitant]
  4. NEUER [Concomitant]

REACTIONS (1)
  - BLOOD AMYLASE INCREASED [None]
